FAERS Safety Report 10217552 (Version 3)
Quarter: 2016Q4

REPORT INFORMATION
  Report Type: Spontaneous
  Country: MX (occurrence: MX)
  Receive Date: 20140604
  Receipt Date: 20161201
  Transmission Date: 20170206
  Serious: Yes (Death, Other)
  Sender: FDA-Public Use
  Company Number: MX-UCBSA-123254

PATIENT
  Age: 74 Year
  Sex: Male
  Weight: 100 kg

DRUGS (4)
  1. LEVODOPA [Concomitant]
     Active Substance: LEVODOPA
     Indication: PARKINSON^S DISEASE
     Dosage: 25 MG 4 TABLET DAILY
     Route: 048
     Dates: start: 2006, end: 20140325
  2. PRAMIPEXOLE. [Concomitant]
     Active Substance: PRAMIPEXOLE
     Indication: PARKINSON^S DISEASE
     Dosage: 50 MG 2 TABLET DAILY
     Route: 048
     Dates: start: 2006, end: 20140325
  3. NUBRENZA [Suspect]
     Active Substance: ROTIGOTINE
     Indication: PARKINSON^S DISEASE
     Dosage: 8 MG, ONCE DAILY (QD)
     Route: 062
     Dates: start: 20130814, end: 20140324
  4. CLOZAPINE. [Concomitant]
     Active Substance: CLOZAPINE
     Indication: PARKINSON^S DISEASE
     Dosage: 25 MG 1/4 OF A TABLET DAILY
     Route: 048
     Dates: end: 20140325

REACTIONS (2)
  - Myocardial infarction [Fatal]
  - Cardiac arrest [Fatal]

NARRATIVE: CASE EVENT DATE: 20140325
